FAERS Safety Report 10286592 (Version 1)
Quarter: 2014Q3

REPORT INFORMATION
  Report Type: Report from Study
  Country: DE (occurrence: DE)
  Receive Date: 20140709
  Receipt Date: 20140709
  Transmission Date: 20150326
  Serious: Yes (Other)
  Sender: FDA-Public Use
  Company Number: PHHY2014DE084164

PATIENT
  Age: 64 Year
  Sex: Male

DRUGS (11)
  1. AMN107 [Suspect]
     Active Substance: NILOTINIB
     Indication: CHRONIC MYELOID LEUKAEMIA
     Dosage: 400 MG, QD
     Dates: start: 20080614
  2. TAVANIC [Concomitant]
     Active Substance: LEVOFLOXACIN
     Dates: start: 20080626, end: 20080710
  3. AMN107 [Suspect]
     Active Substance: NILOTINIB
     Dosage: 800 MG, QD
     Dates: start: 20090622
  4. TRAMAL [Concomitant]
     Active Substance: TRAMADOL
     Dates: start: 20020401, end: 20110421
  5. AMN107 [Suspect]
     Active Substance: NILOTINIB
     Dosage: 800 MG, QD
     Dates: start: 20080711
  6. AMN107 [Suspect]
     Active Substance: NILOTINIB
     Dosage: 400 MG, QD
     Dates: start: 20081008
  7. ASPIRIN. [Concomitant]
     Active Substance: ASPIRIN
     Dates: start: 20020401, end: 20110421
  8. DURACARE//POLYVINYL ALCOHOL [Concomitant]
     Dates: start: 20020401, end: 20110421
  9. ISOKET [Concomitant]
     Active Substance: ISOSORBIDE DINITRATE
     Dates: start: 20020401, end: 20110421
  10. LISINOPRIL. [Concomitant]
     Active Substance: LISINOPRIL
     Dates: start: 20020401, end: 20110421
  11. METODURA [Concomitant]
     Dates: start: 20020401, end: 20110421

REACTIONS (2)
  - Chronic myeloid leukaemia [Not Recovered/Not Resolved]
  - Malignant neoplasm progression [Not Recovered/Not Resolved]

NARRATIVE: CASE EVENT DATE: 20100201
